FAERS Safety Report 7278397-7 (Version None)
Quarter: 2011Q1

REPORT INFORMATION
  Report Type: 
  Country: None (occurrence: None)
  Receive Date: 20110207
  Receipt Date: 20110202
  Transmission Date: 20110831
  Serious: Yes (Life-Threatening, Hospitalization)
  Sender: FDA-Public Use
  Company Number: JP-ASTRAZENECA-2010SE59917

PATIENT
  Age: 84 Year
  Sex: Male

DRUGS (8)
  1. MAGMITT [Concomitant]
     Route: 048
     Dates: end: 20101108
  2. HARNAL D [Suspect]
     Route: 048
  3. THEO-DUR [Concomitant]
     Route: 048
     Dates: end: 20101108
  4. LENDORMIN [Concomitant]
     Route: 048
     Dates: end: 20101108
  5. OMEPRAZON [Suspect]
     Indication: GASTRITIS
     Route: 048
     Dates: end: 20101108
  6. SALOBEL [Suspect]
     Indication: HYPERURICAEMIA
     Route: 048
     Dates: end: 20101108
  7. GASMOTIN [Concomitant]
     Route: 048
     Dates: end: 20101108
  8. GLYCORAN [Concomitant]
     Route: 048
     Dates: end: 20101108

REACTIONS (1)
  - DRUG ERUPTION [None]
